FAERS Safety Report 20088517 (Version 1)
Quarter: 2021Q4

REPORT INFORMATION
  Report Type: Report from Study
  Country: MX (occurrence: MX)
  Receive Date: 20211119
  Receipt Date: 20211119
  Transmission Date: 20220303
  Serious: Yes (Hospitalization)
  Sender: FDA-Public Use
  Company Number: MX-ABBVIE-21K-107-4167008-00

PATIENT
  Age: 57 Year
  Sex: Male
  Weight: 103 kg

DRUGS (5)
  1. HUMIRA [Suspect]
     Active Substance: ADALIMUMAB
     Indication: Ankylosing spondylitis
     Route: 058
     Dates: start: 20201217
  2. LEFLUNOMIDE [Concomitant]
     Active Substance: LEFLUNOMIDE
     Indication: Ankylosing spondylitis
  3. CELECOXIB [Concomitant]
     Active Substance: CELECOXIB
     Indication: Ankylosing spondylitis
  4. METHOTREXATE [Concomitant]
     Active Substance: METHOTREXATE
     Indication: Ankylosing spondylitis
  5. VITAMIN D [Concomitant]
     Active Substance: VITAMIN D NOS
     Indication: Ankylosing spondylitis

REACTIONS (2)
  - Haemorrhoids [Recovering/Resolving]
  - Haemoglobin decreased [Recovering/Resolving]

NARRATIVE: CASE EVENT DATE: 20211114
